FAERS Safety Report 4267273-X (Version None)
Quarter: 2004Q1

REPORT INFORMATION
  Report Type: 
  Country: None (occurrence: None)
  Receive Date: 20040107
  Receipt Date: 20031218
  Transmission Date: 20041129
  Serious: Yes (Hospitalization, Other)
  Sender: FDA-Public Use
  Company Number: 220001M03CHE

PATIENT
  Age: 60 Year
  Sex: Female

DRUGS (1)
  1. SAIZEN [Suspect]

REACTIONS (1)
  - BREAST CANCER [None]
